FAERS Safety Report 24083947 (Version 1)
Quarter: 2024Q3

REPORT INFORMATION
  Report Type: Spontaneous
  Country: AU (occurrence: AU)
  Receive Date: 20240712
  Receipt Date: 20240712
  Transmission Date: 20241016
  Serious: Yes (Other)
  Sender: ACCORD
  Company Number: None

PATIENT
  Age: 68 Year

DRUGS (1)
  1. PACLITAXEL [Suspect]
     Active Substance: PACLITAXEL
     Indication: Product used for unknown indication

REACTIONS (5)
  - Chest discomfort [Unknown]
  - Unresponsive to stimuli [Unknown]
  - Dyspnoea [Unknown]
  - Hypotension [Unknown]
  - Presyncope [Unknown]
